FAERS Safety Report 6179057-6 (Version None)
Quarter: 2009Q2

REPORT INFORMATION
  Report Type: 
  Country: None (occurrence: None)
  Receive Date: 20090430
  Receipt Date: 20090425
  Transmission Date: 20091009
  Serious: Yes (Other)
  Sender: FDA-Public Use
  Company Number: CHPA2009US10188

PATIENT
  Age: 19 Year
  Sex: Female

DRUGS (6)
  1. NICOTINE [Suspect]
     Indication: SMOKING CESSATION THERAPY
     Dosage: 21 MG, QD, TRANSDERMAL
     Route: 062
     Dates: start: 20090422, end: 20090425
  2. INSULIN (INSULIN) [Concomitant]
  3. ABILIFY [Concomitant]
  4. AMBIEN [Concomitant]
  5. LAMICTAL [Concomitant]
  6. LITHIUM CARBONATE [Concomitant]

REACTIONS (1)
  - BLOOD GLUCOSE INCREASED [None]
